FAERS Safety Report 6655839-9 (Version None)
Quarter: 2010Q1

REPORT INFORMATION
  Report Type: 
  Country: None (occurrence: None)
  Receive Date: 20100329
  Receipt Date: 20100323
  Transmission Date: 20100710
  Serious: Yes (Hospitalization)
  Sender: FDA-Public Use
  Company Number: IT-ROCHE-693179

PATIENT
  Sex: Female

DRUGS (5)
  1. TRASTUZUMAB [Suspect]
     Indication: BREAST CANCER
     Dosage: FIRST CYCLE
     Route: 042
     Dates: start: 20100305
  2. EPIRUBICIN [Suspect]
     Indication: BREAST CANCER
     Dosage: FIRST CYCLE
     Route: 042
     Dates: start: 20100305
  3. FLUOROURACIL [Suspect]
     Indication: BREAST CANCER
     Dosage: FIRST CYCLE
     Route: 042
     Dates: start: 20100305
  4. CYCLOPHOSPHAMIDE [Suspect]
     Indication: BREAST CANCER
     Dosage: FIRST CYCLE
     Route: 042
     Dates: start: 20100305
  5. INSULIN LISPRO [Concomitant]
     Dates: start: 20100315

REACTIONS (3)
  - FUNGAL SKIN INFECTION [None]
  - PYREXIA [None]
  - VOMITING [None]
